FAERS Safety Report 5607575-5 (Version None)
Quarter: 2008Q1

REPORT INFORMATION
  Report Type: 
  Country: None (occurrence: None)
  Receive Date: 20080130
  Receipt Date: 20080118
  Transmission Date: 20080703
  Serious: Yes (Death)
  Sender: FDA-Public Use
  Company Number: ES-NOVOPROD-271440

PATIENT

DRUGS (2)
  1. NOVOSEVEN [Suspect]
     Indication: SURGERY
     Dosage: 9.6 UG, UNK
     Route: 042
  2. RED BLOOD CELLS [Concomitant]
     Indication: GASTROINTESTINAL HAEMORRHAGE
     Dosage: 26 U, UNK
     Route: 042

REACTIONS (1)
  - DRUG INEFFECTIVE [None]
